FAERS Safety Report 13640890 (Version 1)
Quarter: 2017Q2

REPORT INFORMATION
  Report Type: Spontaneous
  Country: US (occurrence: US)
  Receive Date: 20170612
  Receipt Date: 20170612
  Transmission Date: 20170830
  Serious: No
  Sender: FDA-Public Use
  Company Number: US-TEVA-763289ACC

PATIENT
  Sex: Male

DRUGS (1)
  1. TESTOSTERONE GEL 1 PERCENT [Suspect]
     Active Substance: TESTOSTERONE

REACTIONS (2)
  - Drug ineffective [Unknown]
  - Feeling abnormal [Unknown]
